FAERS Safety Report 9025009 (Version 1)
Quarter: 2013Q1

REPORT INFORMATION
  Report Type: Spontaneous
  Country: BR (occurrence: BR)
  Receive Date: 20130121
  Receipt Date: 20130121
  Transmission Date: 20140127
  Serious: Yes (Hospitalization, Other)
  Sender: FDA-Public Use
  Company Number: PHHY2013BR004340

PATIENT
  Age: 77 None
  Sex: Male

DRUGS (10)
  1. COMTAN [Suspect]
     Indication: PARKINSON^S DISEASE
     Dosage: 1 DF, UNK
     Route: 048
     Dates: start: 20130110
  2. COMTAN [Suspect]
     Dosage: 2 DF, UNK
     Route: 048
  3. COMTAN [Suspect]
     Dosage: 3 DF, UNK
     Route: 048
  4. COMTAN [Suspect]
     Dosage: 4 DF, UNK
     Route: 048
     Dates: end: 20130113
  5. ABLOK [Concomitant]
     Indication: HYPERTENSION
     Dosage: 1 DF, Q12H
  6. VASOPRIL [Concomitant]
     Indication: HYPERTENSION
     Dosage: 2 DF, Q12H
  7. ASPIRINA PREVENT [Concomitant]
  8. DAONIL [Concomitant]
     Indication: DIABETES MELLITUS
  9. DRUG THERAPY NOS [Concomitant]
     Indication: PROSTATIC DISORDER
     Dosage: UNK UKN, UNK
     Dates: start: 201212
  10. LEVODOPA [Concomitant]

REACTIONS (11)
  - Movement disorder [Recovered/Resolved]
  - Hallucination [Recovered/Resolved]
  - Laziness [Recovered/Resolved]
  - Muscle spasms [Recovered/Resolved]
  - Tremor [Recovered/Resolved]
  - Dyspnoea [Recovered/Resolved]
  - Musculoskeletal stiffness [Recovered/Resolved]
  - Dysphagia [Recovered/Resolved]
  - Choking [Recovered/Resolved]
  - Anxiety [Recovered/Resolved]
  - Tension [Recovered/Resolved]
